FAERS Safety Report 10061180 (Version 2)
Quarter: 2017Q4

REPORT INFORMATION
  Report Type: Report from Study
  Country: US (occurrence: US)
  Receive Date: 20140407
  Receipt Date: 20171023
  Transmission Date: 20180320
  Serious: Yes (Other)
  Sender: FDA-Public Use
  Company Number: US-ROCHE-1371874

PATIENT
  Age: 21 Year
  Sex: Female
  Weight: 62.7 kg

DRUGS (17)
  1. FLUOXETINE HCL [Concomitant]
     Active Substance: FLUOXETINE HYDROCHLORIDE
     Dosage: 40 MG CAPSULE, 2 ORAL DAILY
     Route: 048
  2. SOLU-MEDROL [Concomitant]
     Active Substance: METHYLPREDNISOLONE SODIUM SUCCINATE
     Route: 065
     Dates: start: 20121210
  3. SYNTHROID [Concomitant]
     Active Substance: LEVOTHYROXINE SODIUM
     Route: 048
  4. CYTOMEL [Concomitant]
     Active Substance: LIOTHYRONINE SODIUM
     Route: 048
     Dates: start: 20121210
  5. KLONOPIN [Suspect]
     Active Substance: CLONAZEPAM
     Indication: PRODUCT USED FOR UNKNOWN INDICATION
     Route: 048
  6. TRAZODONE HYDROCHLORIDE. [Concomitant]
     Active Substance: TRAZODONE HYDROCHLORIDE
     Route: 048
  7. ABILIFY [Concomitant]
     Active Substance: ARIPIPRAZOLE
     Dosage: 2 MG TABLET, 1/2 ORAL DAILY
     Route: 048
  8. HYDROCORTISONE. [Concomitant]
     Active Substance: HYDROCORTISONE
     Route: 048
  9. CORTEF [Concomitant]
     Active Substance: HYDROCORTISONE
     Dosage: 5 MG TABLET, 1.5 IN AM, 1 IN PM
     Route: 048
     Dates: start: 20121210
  10. STRATTERA [Concomitant]
     Active Substance: ATOMOXETINE HYDROCHLORIDE
     Route: 048
  11. BUSPAR [Concomitant]
     Active Substance: BUSPIRONE HYDROCHLORIDE
     Route: 048
  12. LAMICTAL [Concomitant]
     Active Substance: LAMOTRIGINE
     Route: 065
  13. SYNTHROID [Concomitant]
     Active Substance: LEVOTHYROXINE SODIUM
     Route: 048
     Dates: start: 20121210
  14. LITHIUM CARBONATE. [Concomitant]
     Active Substance: LITHIUM CARBONATE
     Route: 048
  15. NUTROPIN AQ [Suspect]
     Active Substance: SOMATROPIN
     Indication: HYPOPITUITARISM
     Route: 058
     Dates: start: 1995
  16. JUNEL FE 1/20 [Concomitant]
     Active Substance: ETHINYL ESTRADIOL\NORETHINDRONE ACETATE
     Route: 048
     Dates: start: 20121210
  17. PRAZOSIN HCL [Concomitant]
     Active Substance: PRAZOSIN HYDROCHLORIDE
     Route: 048

REACTIONS (34)
  - Depression [Unknown]
  - Constipation [Unknown]
  - Cough [Unknown]
  - Alanine aminotransferase increased [Unknown]
  - Fall [Unknown]
  - Change of bowel habit [Unknown]
  - Blood urea nitrogen/creatinine ratio decreased [Unknown]
  - Mania [Unknown]
  - Appetite disorder [Unknown]
  - Balance disorder [Unknown]
  - Myalgia [Unknown]
  - Sinus disorder [Unknown]
  - Nausea [Unknown]
  - Thirst [Unknown]
  - Weight increased [Unknown]
  - Cortisol increased [Unknown]
  - Fatigue [Unknown]
  - Dyspnoea [Unknown]
  - Abdominal pain [Unknown]
  - Hypotension [Unknown]
  - Chills [Unknown]
  - Back pain [Unknown]
  - Disturbance in attention [Unknown]
  - Asthenia [Unknown]
  - Menstrual disorder [Unknown]
  - Anxiety [Unknown]
  - Ill-defined disorder [Unknown]
  - Injection site bruising [Unknown]
  - Dizziness [Unknown]
  - Aspartate aminotransferase increased [Unknown]
  - Haematochezia [Unknown]
  - Dyspepsia [Unknown]
  - Muscle spasms [Unknown]
  - Temperature intolerance [Unknown]

NARRATIVE: CASE EVENT DATE: 20130726
